FAERS Safety Report 7638148-0 (Version None)
Quarter: 2011Q3

REPORT INFORMATION
  Report Type: 
  Country: None (occurrence: None)
  Receive Date: 20110727
  Receipt Date: 20110716
  Transmission Date: 20111222
  Serious: Yes (Hospitalization)
  Sender: FDA-Public Use
  Company Number: JP-JNJFOC-20110707673

PATIENT
  Sex: Female
  Weight: 76 kg

DRUGS (1)
  1. GOLIMUMAB [Suspect]
     Indication: RHEUMATOID ARTHRITIS
     Route: 058
     Dates: start: 20090219, end: 20110708

REACTIONS (3)
  - OTITIS MEDIA [None]
  - OTITIS EXTERNA [None]
  - MENINGITIS [None]
